FAERS Safety Report 10140587 (Version 1)
Quarter: 2014Q2

REPORT INFORMATION
  Report Type: Spontaneous
  Country: GB (occurrence: GB)
  Receive Date: 20140429
  Receipt Date: 20140429
  Transmission Date: 20141212
  Serious: Yes (Other)
  Sender: FDA-Public Use
  Company Number: GB-GLAXOSMITHKLINE-B0989361A

PATIENT
  Sex: Male

DRUGS (1)
  1. NIQUITIN MINI LOZENGES [Suspect]
     Indication: EX-TOBACCO USER
     Dates: start: 20110201, end: 20140424

REACTIONS (3)
  - Stress [Unknown]
  - Off label use [Unknown]
  - Dependence [Unknown]
